FAERS Safety Report 4604361-X (Version None)
Quarter: 2005Q1

REPORT INFORMATION
  Report Type: 
  Country: None (occurrence: None)
  Receive Date: 20050309
  Receipt Date: 20050309
  Transmission Date: 20050727
  Serious: Yes (Other)
  Sender: FDA-Public Use
  Company Number: None

PATIENT
  Age: 15 Year
  Sex: Female
  Weight: 48.0813 kg

DRUGS (1)
  1. ORTHO-NOVUM 1/35 [Suspect]
     Indication: METRORRHAGIA
     Dosage: ONE  DAILY   X 28 DAYS

REACTIONS (2)
  - METRORRHAGIA [None]
  - PHARMACEUTICAL PRODUCT COMPLAINT [None]
